FAERS Safety Report 6913165-4 (Version None)
Quarter: 2010Q3

REPORT INFORMATION
  Report Type: 
  Country: None (occurrence: None)
  Receive Date: 20100806
  Receipt Date: 20091019
  Transmission Date: 20110219
  Serious: No
  Sender: FDA-Public Use
  Company Number: US-PFIZER INC-2009228469

PATIENT
  Sex: Male
  Weight: 78.9 kg

DRUGS (4)
  1. DETROL LA [Suspect]
     Indication: BLADDER IRRITATION
     Dosage: 2 MG, 1X/DAY
     Route: 048
  2. DETROL LA [Suspect]
     Indication: POLLAKIURIA
  3. LIPITOR [Concomitant]
     Indication: BLOOD CHOLESTEROL INCREASED
     Dosage: UNK
  4. SYNTHROID [Concomitant]

REACTIONS (2)
  - DRUG INEFFECTIVE [None]
  - OEDEMA PERIPHERAL [None]
